FAERS Safety Report 5364059-X (Version None)
Quarter: 2007Q2

REPORT INFORMATION
  Report Type: 
  Country: None (occurrence: None)
  Receive Date: 20070620
  Receipt Date: 20070607
  Transmission Date: 20071010
  Serious: Yes (Disabling)
  Sender: FDA-Public Use
  Company Number: GB-ASTRAZENECA-2007GB01203

PATIENT
  Age: 67 Year
  Sex: Male

DRUGS (6)
  1. ATENOLOL [Suspect]
     Indication: ANGINA PECTORIS
     Route: 048
     Dates: start: 20060302
  2. RAMIPRIL [Suspect]
     Indication: ANGINA PECTORIS
     Route: 048
     Dates: start: 20050824
  3. AMLODIPINE [Suspect]
     Indication: ANGINA PECTORIS
     Route: 048
     Dates: start: 20061120
  4. GLICLAZIDE [Suspect]
     Indication: DIABETES MELLITUS
     Route: 048
     Dates: start: 20050620
  5. GLUCOPHAGE [Suspect]
     Indication: DIABETES MELLITUS
     Route: 048
     Dates: start: 20061120
  6. SIMVASTATIN [Concomitant]
     Indication: MYOCARDIAL ISCHAEMIA
     Route: 048
     Dates: start: 20050714

REACTIONS (2)
  - JEALOUS DELUSION [None]
  - SLEEP TERROR [None]
